FAERS Safety Report 4603646-0 (Version None)
Quarter: 2005Q1

REPORT INFORMATION
  Report Type: 
  Country: None (occurrence: None)
  Receive Date: 20050308
  Receipt Date: 20050308
  Transmission Date: 20050727
  Serious: Yes (Hospitalization)
  Sender: FDA-Public Use
  Company Number: None

PATIENT
  Age: 52 Year
  Sex: Female
  Weight: 55 kg

DRUGS (3)
  1. NAVELBINE [Suspect]
     Indication: CERVIX CARCINOMA
     Dosage: 30 MG/ML D1 + D 8
     Dates: start: 20050124
  2. NAVELBINE [Suspect]
     Indication: CERVIX CARCINOMA
     Dosage: 30 MG/ML D1 + D 8
     Dates: start: 20050131
  3. CISPLATIN [Suspect]
     Dosage: 50 MG/M2
     Dates: start: 20050124

REACTIONS (1)
  - PULMONARY EMBOLISM [None]
